FAERS Safety Report 5092457-0 (Version None)
Quarter: 2006Q3

REPORT INFORMATION
  Report Type: 
  Country: None (occurrence: None)
  Receive Date: 20060825
  Receipt Date: 20060814
  Transmission Date: 20061208
  Serious: Yes (Other)
  Sender: FDA-Public Use
  Company Number: 2006099760

PATIENT
  Age: 35 Year
  Sex: Female
  Weight: 61.2356 kg

DRUGS (3)
  1. VFEND [Suspect]
     Indication: ASPERGILLOSIS
     Dosage: 400 MG (200 MG, 2 IN 1 D), ORAL
     Route: 048
     Dates: start: 20060811
  2. DIFLUCAN [Suspect]
     Indication: DRUG USE FOR UNKNOWN INDICATION
  3. HORMONAL CONTRACEPTIVES FOR SYSTEMIC USE (HORMONAL CONTRACEPTIVES FOR [Concomitant]

REACTIONS (3)
  - DRUG INEFFECTIVE [None]
  - VISION BLURRED [None]
  - VITREOUS FLOATERS [None]
